FAERS Safety Report 4321256-X (Version None)
Quarter: 2004Q1

REPORT INFORMATION
  Report Type: 
  Country: None (occurrence: None)
  Receive Date: 20040322
  Receipt Date: 20030212
  Transmission Date: 20041129
  Serious: No
  Sender: FDA-Public Use
  Company Number: US-BRISTOL-MYERS SQUIBB COMPANY-12192183

PATIENT
  Age: 21 Year
  Sex: Female

DRUGS (2)
  1. MONISTAT [Suspect]
     Indication: DYSURIA
     Route: 067
     Dates: start: 20030201, end: 20030201
  2. MINOCYCLINE HCL [Concomitant]

REACTIONS (3)
  - BLISTER [None]
  - DRUG INEFFECTIVE [None]
  - VAGINITIS [None]
